FAERS Safety Report 5022110-0 (Version None)
Quarter: 2006Q2

REPORT INFORMATION
  Report Type: 
  Country: None (occurrence: None)
  Receive Date: 20060609
  Receipt Date: 20060601
  Transmission Date: 20061013
  Serious: Yes (Hospitalization)
  Sender: FDA-Public Use
  Company Number: US-JNJFOC-20060600310

PATIENT
  Sex: Male
  Weight: 69.85 kg

DRUGS (13)
  1. REMICADE [Suspect]
     Indication: RHEUMATOID ARTHRITIS
     Route: 042
  2. METHOTREXATE [Concomitant]
  3. NIASPAN [Concomitant]
  4. ASPIRIN [Concomitant]
  5. FAMOTIDINE [Concomitant]
  6. CENTRUM SILVER [Concomitant]
  7. CENTRUM SILVER [Concomitant]
  8. CENTRUM SILVER [Concomitant]
  9. CENTRUM SILVER [Concomitant]
  10. CENTRUM SILVER [Concomitant]
  11. CENTRUM SILVER [Concomitant]
  12. CENTRUM SILVER [Concomitant]
  13. CENTRUM SILVER [Concomitant]

REACTIONS (2)
  - CORONARY ARTERY DISEASE [None]
  - ULCER [None]
